FAERS Safety Report 7744749-1 (Version None)
Quarter: 2011Q3

REPORT INFORMATION
  Report Type: 
  Country: None (occurrence: None)
  Receive Date: 20110912
  Receipt Date: 20110912
  Transmission Date: 20111222
  Serious: Yes (Life-Threatening, Hospitalization, Disabling)
  Sender: FDA-Public Use
  Company Number: None

PATIENT
  Age: 62 Year
  Sex: Female
  Weight: 83.2 kg

DRUGS (1)
  1. SIMVASTATIN [Suspect]
     Indication: HYPERCHOLESTEROLAEMIA
     Dates: start: 20110101, end: 20110908

REACTIONS (10)
  - DIZZINESS [None]
  - RHABDOMYOLYSIS [None]
  - HYPERKALAEMIA [None]
  - HYPERHIDROSIS [None]
  - NAUSEA [None]
  - ABDOMINAL PAIN [None]
  - RENAL FAILURE ACUTE [None]
  - PALLOR [None]
  - VOMITING [None]
  - ASTHENIA [None]
